FAERS Safety Report 7569890-8 (Version None)
Quarter: 2011Q2

REPORT INFORMATION
  Report Type: 
  Country: None (occurrence: None)
  Receive Date: 20110622
  Receipt Date: 20110622
  Transmission Date: 20111010
  Serious: Yes (Other)
  Sender: FDA-Public Use
  Company Number: None

PATIENT
  Age: 7 Year
  Sex: Male
  Weight: 27.2158 kg

DRUGS (4)
  1. SINGULAIR [Suspect]
     Indication: MULTIPLE ALLERGIES
     Dosage: 1 TABLET ONCE PER DAY PO
     Route: 048
     Dates: start: 20101001, end: 20110607
  2. PREVACID [Concomitant]
  3. ZYRTEC [Concomitant]
  4. NASONEX [Concomitant]

REACTIONS (8)
  - ANXIETY [None]
  - HEADACHE [None]
  - SUICIDAL IDEATION [None]
  - DEPRESSION [None]
  - AGGRESSION [None]
  - IRRITABILITY [None]
  - FATIGUE [None]
  - AGITATION [None]
